FAERS Safety Report 25106362 (Version 1)
Quarter: 2025Q1

REPORT INFORMATION
  Report Type: Spontaneous
  Country: AU (occurrence: AU)
  Receive Date: 20250321
  Receipt Date: 20250321
  Transmission Date: 20250409
  Serious: Yes (Death, Other)
  Sender: NOVARTIS
  Company Number: AU-002147023-NVSC2025AU047332

PATIENT
  Age: 78 Year
  Sex: Male

DRUGS (1)
  1. LUTETIUM LU-177 VIPIVOTIDE TETRAXETAN [Suspect]
     Active Substance: LUTETIUM LU-177 VIPIVOTIDE TETRAXETAN
     Indication: Hormone-refractory prostate cancer
     Route: 065

REACTIONS (6)
  - Death [Fatal]
  - Pancytopenia [Unknown]
  - Thrombocytopenia [Recovered/Resolved]
  - Second primary malignancy [Unknown]
  - Acute myeloid leukaemia [Unknown]
  - Inappropriate schedule of product administration [Unknown]
